FAERS Safety Report 15172965 (Version 2)
Quarter: 2019Q3

REPORT INFORMATION
  Report Type: Spontaneous
  Country: US (occurrence: US)
  Receive Date: 20180720
  Receipt Date: 20190809
  Transmission Date: 20191004
  Serious: No
  Sender: FDA-Public Use
  Company Number: US-ROCHE-2143826

PATIENT
  Sex: Female
  Weight: 54.48 kg

DRUGS (2)
  1. BONIVA [Suspect]
     Active Substance: IBANDRONATE SODIUM
     Indication: OSTEOPOROSIS
     Dosage: ON THE 3RD DAY OF THE MONTH
     Route: 048
     Dates: start: 201801
  2. BONIVA [Suspect]
     Active Substance: IBANDRONATE SODIUM
     Indication: OSTEOPENIA

REACTIONS (6)
  - Malaise [Unknown]
  - Pain in jaw [Unknown]
  - Tinnitus [Not Recovered/Not Resolved]
  - Ear discomfort [Unknown]
  - Tooth disorder [Unknown]
  - Toothache [Unknown]
